FAERS Safety Report 4800045-3 (Version None)
Quarter: 2005Q4

REPORT INFORMATION
  Report Type: 
  Country: None (occurrence: None)
  Receive Date: 20051017
  Receipt Date: 20051004
  Transmission Date: 20060501
  Serious: Yes (Life-Threatening, Hospitalization)
  Sender: FDA-Public Use
  Company Number: US-JNJFOC-20050300173

PATIENT
  Sex: Female
  Weight: 69.85 kg

DRUGS (17)
  1. INFLIXIMAB [Suspect]
     Route: 042
  2. INFLIXIMAB [Suspect]
     Route: 042
  3. INFLIXIMAB [Suspect]
     Route: 042
  4. INFLIXIMAB [Suspect]
     Route: 042
  5. INFLIXIMAB [Suspect]
     Route: 042
  6. INFLIXIMAB [Suspect]
     Route: 042
  7. INFLIXIMAB [Suspect]
     Route: 042
  8. INFLIXIMAB [Suspect]
     Indication: CROHN'S DISEASE
     Route: 042
  9. IMODIUM [Suspect]
     Indication: CROHN'S DISEASE
     Route: 065
  10. ANTIBIOTICS [Suspect]
     Indication: CROHN'S DISEASE
     Route: 065
  11. NARCOTIC ANALGESICS [Suspect]
     Indication: CROHN'S DISEASE
     Route: 065
  12. LASIX [Suspect]
     Indication: CROHN'S DISEASE
     Route: 065
  13. SPIRONOLACTONE [Suspect]
     Indication: CROHN'S DISEASE
     Route: 065
  14. INSULIN [Suspect]
     Indication: CROHN'S DISEASE
     Route: 065
  15. IMODIUM [Suspect]
  16. CITRUCEL [Concomitant]
  17. QUININE SULFATE [Concomitant]

REACTIONS (2)
  - HEPATIC FAILURE [None]
  - SARCOIDOSIS [None]
